FAERS Safety Report 10058613 (Version 1)
Quarter: 2014Q2

REPORT INFORMATION
  Report Type: Spontaneous
  Country: IT (occurrence: IT)
  Receive Date: 20140404
  Receipt Date: 20140404
  Transmission Date: 20141212
  Serious: Yes (Other)
  Sender: FDA-Public Use
  Company Number: IT-TEVA-470774ISR

PATIENT
  Age: 64 Year
  Sex: Male

DRUGS (3)
  1. PERINDOPRIL [Suspect]
     Dosage: 10 MG DAILY
     Route: 048
     Dates: start: 20110101, end: 20140317
  2. MINITRAN - 5 MG/24 ORE CEROTTI TRANSDERMICI [Concomitant]
  3. CARDIOASPIRIN [Concomitant]

REACTIONS (1)
  - Syncope [Recovered/Resolved]
